FAERS Safety Report 5410433-2 (Version None)
Quarter: 2007Q3

REPORT INFORMATION
  Report Type: 
  Country: None (occurrence: None)
  Receive Date: 20070810
  Receipt Date: 20070803
  Transmission Date: 20080115
  Serious: Yes (Hospitalization, Other)
  Sender: FDA-Public Use
  Company Number: PHBS2006JP18681

PATIENT
  Age: 62 Year
  Sex: Male

DRUGS (3)
  1. ZOMETA [Suspect]
     Indication: METASTASES TO BONE
     Dosage: 4 MG
     Route: 041
     Dates: start: 20060929, end: 20061027
  2. AREDIA [Suspect]
     Indication: METASTASES TO BONE
     Dosage: 45 MG, QMO
     Route: 041
     Dates: start: 20050319, end: 20060825
  3. TAXOTERE [Suspect]
     Dosage: 60 MG, BIW
     Route: 042
     Dates: start: 20050319

REACTIONS (8)
  - DENTAL CARIES [None]
  - JAW FRACTURE [None]
  - JAW OPERATION [None]
  - OEDEMA MUCOSAL [None]
  - OSTEOMYELITIS [None]
  - OSTEONECROSIS [None]
  - PERIODONTITIS [None]
  - TOOTHACHE [None]
